FAERS Safety Report 6470497-4 (Version None)
Quarter: 2009Q4

REPORT INFORMATION
  Report Type: 
  Country: None (occurrence: None)
  Receive Date: 20091202
  Receipt Date: 20091202
  Transmission Date: 20100525
  Serious: Yes (Hospitalization, Other)
  Sender: FDA-Public Use
  Company Number: None

PATIENT
  Sex: Male
  Weight: 39.5 kg

DRUGS (2)
  1. SINGULAIR [Suspect]
     Indication: ASTHMA
     Dosage: ONCE DAILY PO
     Route: 048
     Dates: start: 20081201, end: 20090801
  2. SINGULAIR [Suspect]
     Indication: SEASONAL ALLERGY
     Dosage: ONCE DAILY PO
     Route: 048
     Dates: start: 20081201, end: 20090801

REACTIONS (6)
  - ANXIETY [None]
  - CONVERSION DISORDER [None]
  - DECREASED APPETITE [None]
  - DEPRESSION [None]
  - SLEEP DISORDER [None]
  - SUICIDAL IDEATION [None]
